FAERS Safety Report 13028836 (Version 2)
Quarter: 2016Q4

REPORT INFORMATION
  Report Type: Report from Study
  Country: None (occurrence: RO)
  Receive Date: 20161214
  Receipt Date: 20161219
  Transmission Date: 20170207
  Serious: Yes (Death, Other)
  Sender: FDA-Public Use
  Company Number: RO-ABBVIE-16P-135-1809022-00

PATIENT
  Age: 74 Year
  Sex: Male

DRUGS (1)
  1. DUODOPA [Suspect]
     Active Substance: CARBIDOPA\LEVODOPA
     Indication: PARKINSON^S DISEASE
     Dosage: MD=7,5ML; CR=3ML; ED=1,5ML
     Route: 050
     Dates: start: 20110303, end: 20161201

REACTIONS (5)
  - Intestinal obstruction [Unknown]
  - Cardio-respiratory arrest [Fatal]
  - Abdominal pain [Unknown]
  - Dysphagia [Unknown]
  - Pneumonia klebsiella [Fatal]

NARRATIVE: CASE EVENT DATE: 20161130
